FAERS Safety Report 20052264 (Version 3)
Quarter: 2021Q4

REPORT INFORMATION
  Report Type: Spontaneous
  Country: JP (occurrence: JP)
  Receive Date: 20211110
  Receipt Date: 20211227
  Transmission Date: 20220303
  Serious: Yes (Death, Other)
  Sender: FDA-Public Use
  Company Number: JP-ASTELLAS-2021JP020709

PATIENT
  Age: 8 Decade
  Sex: Male

DRUGS (3)
  1. XOSPATA [Suspect]
     Active Substance: GILTERITINIB
     Indication: Acute myeloid leukaemia
     Dosage: 120 MG/DAY, UNKNOWN FREQ.
     Route: 048
     Dates: start: 20210304
  2. ALLOPURINOL [Concomitant]
     Active Substance: ALLOPURINOL
     Indication: Product used for unknown indication
     Dosage: UNK UNK, UNKNOWN FREQ.
     Route: 048
  3. NIFEDIPINE [Concomitant]
     Active Substance: NIFEDIPINE
     Indication: Product used for unknown indication
     Dosage: UNK UNK, UNKNOWN FREQ.
     Route: 048

REACTIONS (9)
  - Disease progression [Fatal]
  - Salivary gland neoplasm [Unknown]
  - Diarrhoea [Unknown]
  - Anaemia [Unknown]
  - Rash [Unknown]
  - Constipation [Unknown]
  - Blood pressure increased [Unknown]
  - Internal haemorrhage [Fatal]
  - Pyrexia [Fatal]

NARRATIVE: CASE EVENT DATE: 20210401
